FAERS Safety Report 13075468 (Version 5)
Quarter: 2018Q1

REPORT INFORMATION
  Report Type: Report from Study
  Country: JP (occurrence: JP)
  Receive Date: 20161230
  Receipt Date: 20180206
  Transmission Date: 20180508
  Serious: Yes (Hospitalization)
  Sender: FDA-Public Use
  Company Number: JP-PFIZER INC-2016595340

PATIENT
  Age: 63 Year
  Sex: Female

DRUGS (9)
  1. CARERAM [Suspect]
     Active Substance: IGURATIMOD
     Dosage: UNK
     Dates: start: 20170130, end: 20170530
  2. AZULFIDINE EN-TABS [Suspect]
     Active Substance: SULFASALAZINE
     Dosage: UNK
  3. LOXONIN [Concomitant]
     Active Substance: LOXOPROFEN SODIUM
     Route: 048
  4. RHEUMATREX [Suspect]
     Active Substance: METHOTREXATE SODIUM
     Indication: RHEUMATOID ARTHRITIS
     Dosage: 6 MG, WEEKLY
     Route: 048
     Dates: end: 20170529
  5. CYTOTEC [Concomitant]
     Active Substance: MISOPROSTOL
     Route: 048
  6. ACTEMRA [Suspect]
     Active Substance: TOCILIZUMAB
     Indication: RHEUMATOID ARTHRITIS
     Dosage: UNK
     Route: 058
     Dates: start: 20160301, end: 20160526
  7. FOLIAMIN [Concomitant]
     Active Substance: FOLIC ACID
     Route: 048
  8. XELJANZ [Suspect]
     Active Substance: TOFACITINIB CITRATE
     Indication: RHEUMATOID ARTHRITIS
     Dosage: 5 MG, 2X/DAY
     Route: 048
     Dates: start: 20160609, end: 20160725
  9. RHEUMATREX [Suspect]
     Active Substance: METHOTREXATE SODIUM
     Dosage: 8 MG, WEEKLY
     Route: 048
     Dates: start: 20170530

REACTIONS (3)
  - Arthritis bacterial [Recovered/Resolved]
  - Spondylitis [Recovered/Resolved]
  - Medical device site joint infection [Recovered/Resolved]

NARRATIVE: CASE EVENT DATE: 20160801
